FAERS Safety Report 14599169 (Version 1)
Quarter: 2018Q1

REPORT INFORMATION
  Report Type: Spontaneous
  Country: GB (occurrence: GB)
  Receive Date: 20180305
  Receipt Date: 20180305
  Transmission Date: 20180509
  Serious: Yes (Other)
  Sender: FDA-Public Use
  Company Number: GB-OTSUKA-2018_004467

PATIENT
  Age: 38 Year
  Sex: Female
  Weight: 107.9 kg

DRUGS (2)
  1. ARIPIPRAZOLE. [Suspect]
     Active Substance: ARIPIPRAZOLE
     Dosage: 15 MG, UNK
     Route: 048
     Dates: end: 201801
  2. ARIPIPRAZOLE. [Suspect]
     Active Substance: ARIPIPRAZOLE
     Indication: MENTAL DISORDER
     Dosage: 10 MG, UNK
     Route: 048
     Dates: start: 201703

REACTIONS (9)
  - Red cell distribution width increased [Recovering/Resolving]
  - Neutrophil count increased [Recovering/Resolving]
  - Monocyte count increased [Recovering/Resolving]
  - Malaise [Unknown]
  - White blood cell count increased [Recovering/Resolving]
  - Mean cell haemoglobin decreased [Recovering/Resolving]
  - Mean cell volume decreased [Recovering/Resolving]
  - Platelet count increased [Recovering/Resolving]
  - Fatigue [Unknown]

NARRATIVE: CASE EVENT DATE: 201711
